FAERS Safety Report 19518819 (Version 1)
Quarter: 2021Q3

REPORT INFORMATION
  Report Type: Spontaneous
  Country: FR (occurrence: FR)
  Receive Date: 20210712
  Receipt Date: 20210712
  Transmission Date: 20211014
  Serious: Yes (Other)
  Sender: FDA-Public Use
  Company Number: FR-BEH-2021133728

PATIENT
  Age: 89 Year
  Sex: Male
  Weight: 65 kg

DRUGS (11)
  1. PRIVIGEN [Suspect]
     Active Substance: HUMAN IMMUNOGLOBULIN G
     Dosage: 20 GRAM, TOT (4X5G)
     Route: 041
     Dates: start: 20210428, end: 20210501
  2. DAFALGAN [Concomitant]
     Active Substance: ACETAMINOPHEN
     Dosage: 1 UNK
     Route: 065
  3. PRIVIGEN [Suspect]
     Active Substance: HUMAN IMMUNOGLOBULIN G
     Indication: CHRONIC INFLAMMATORY DEMYELINATING POLYRADICULONEUROPATHY
     Dosage: 80 GRAM, TOT (4X20G)
     Route: 041
     Dates: start: 20210428, end: 20210501
  4. SERTRALINE HYDROCHLORIDE. [Concomitant]
     Active Substance: SERTRALINE HYDROCHLORIDE
     Route: 065
  5. GABAPENTINE [Concomitant]
     Active Substance: GABAPENTIN
     Route: 065
  6. VERSATIS [Concomitant]
     Active Substance: LIDOCAINE
     Route: 065
  7. PRIVIGEN [Suspect]
     Active Substance: HUMAN IMMUNOGLOBULIN G
     Dosage: 40 GRAM, TOT (4X10G)
     Route: 041
     Dates: start: 20210428, end: 20210501
  8. PANTOPRAZOLE [Concomitant]
     Active Substance: PANTOPRAZOLE
     Route: 065
  9. AMLOR [Concomitant]
     Active Substance: AMLODIPINE BESYLATE
     Dosage: UNK MILLIGRAM
     Route: 065
  10. TAMSULOSINE [Concomitant]
     Active Substance: TAMSULOSIN HYDROCHLORIDE
     Route: 065
  11. KARDEGIC [Concomitant]
     Active Substance: ASPIRIN DL-LYSINE
     Route: 048

REACTIONS (1)
  - Hypertensive crisis [Recovered/Resolved]

NARRATIVE: CASE EVENT DATE: 20210428
